FAERS Safety Report 20960627 (Version 2)
Quarter: 2022Q3

REPORT INFORMATION
  Report Type: Spontaneous
  Country: US (occurrence: US)
  Receive Date: 20220615
  Receipt Date: 20220927
  Transmission Date: 20221027
  Serious: No
  Sender: FDA-Public Use
  Company Number: US-Calliditas-2022CAL00131

PATIENT
  Sex: Male

DRUGS (9)
  1. TARPEYO [Suspect]
     Active Substance: BUDESONIDE
     Indication: IgA nephropathy
     Dosage: 16 MG (4 MG CAPSULES) DAILY
     Route: 050
     Dates: start: 20220629
  2. DULOXETINE [Concomitant]
     Active Substance: DULOXETINE
     Indication: Arthritis
     Dates: start: 20220101
  3. FISH OIL [Concomitant]
     Active Substance: FISH OIL
  4. VITAMIN B12 [Concomitant]
     Active Substance: CYANOCOBALAMIN
  5. ROSUVASTATIN [Concomitant]
     Active Substance: ROSUVASTATIN
  6. LOSARTAN [Concomitant]
     Active Substance: LOSARTAN
  7. FARXIGA [Concomitant]
     Active Substance: DAPAGLIFLOZIN PROPANEDIOL
  8. ZOLPIDEM [Concomitant]
     Active Substance: ZOLPIDEM TARTRATE
  9. KERENDIA [Concomitant]
     Active Substance: FINERENONE

REACTIONS (3)
  - Neuropathy peripheral [Not Recovered/Not Resolved]
  - Condition aggravated [Not Recovered/Not Resolved]
  - Elbow operation [Recovered/Resolved]

NARRATIVE: CASE EVENT DATE: 20220101
